FAERS Safety Report 16803302 (Version 1)
Quarter: 2019Q3

REPORT INFORMATION
  Report Type: Report from Study
  Country: CO (occurrence: CO)
  Receive Date: 20190913
  Receipt Date: 20190913
  Transmission Date: 20191005
  Serious: Yes (Death, Other)
  Sender: FDA-Public Use
  Company Number: CO-ROCHE-2406978

PATIENT

DRUGS (3)
  1. MYCOPHENOLATE MOFETIL. [Suspect]
     Active Substance: MYCOPHENOLATE MOFETIL
     Indication: SYSTEMIC LUPUS ERYTHEMATOSUS
     Route: 065
  2. CYCLOPHOSPHAMIDE. [Suspect]
     Active Substance: CYCLOPHOSPHAMIDE
     Indication: SYSTEMIC LUPUS ERYTHEMATOSUS
     Route: 065
  3. PREDNISOLONE. [Suspect]
     Active Substance: PREDNISOLONE
     Indication: SYSTEMIC LUPUS ERYTHEMATOSUS
     Route: 048

REACTIONS (20)
  - Infection [Fatal]
  - Staphylococcal infection [Unknown]
  - Tuberculosis [Unknown]
  - Mycobacterium fortuitum infection [Unknown]
  - Pneumocystis jirovecii pneumonia [Unknown]
  - Escherichia infection [Unknown]
  - Acinetobacter infection [Unknown]
  - Pneumococcal infection [Unknown]
  - Cytomegalovirus infection [Unknown]
  - Candida infection [Unknown]
  - Acute pulmonary histoplasmosis [Unknown]
  - Enterobacter infection [Unknown]
  - Plasmodium falciparum infection [Unknown]
  - Meningitis [Unknown]
  - Serratia infection [Unknown]
  - Stenotrophomonas infection [Unknown]
  - Pseudomonas infection [Unknown]
  - Herpes virus infection [Unknown]
  - Rotavirus infection [Unknown]
  - Pneumonia klebsiella [Unknown]
